FAERS Safety Report 10290421 (Version 1)
Quarter: 2014Q3

REPORT INFORMATION
  Report Type: Spontaneous
  Country: US (occurrence: None)
  Receive Date: 20140707
  Receipt Date: 20140707
  Transmission Date: 20150326
  Serious: No
  Sender: FDA-Public Use
  Company Number: None

PATIENT
  Age: 78 Year
  Sex: Male
  Weight: 63.5 kg

DRUGS (1)
  1. MECLIZINE [Suspect]
     Active Substance: MECLIZINE\MECLIZINE HYDROCHLORIDE
     Dosage: 1 TAB, ONCE DAILY, TAKEN BY MOUTH
     Route: 048

REACTIONS (3)
  - Memory impairment [None]
  - Feeling abnormal [None]
  - Bradyphrenia [None]

NARRATIVE: CASE EVENT DATE: 20140704
